FAERS Safety Report 19823750 (Version 1)
Quarter: 2021Q3

REPORT INFORMATION
  Report Type: Spontaneous
  Country: CN (occurrence: CN)
  Receive Date: 20210913
  Receipt Date: 20210913
  Transmission Date: 20211014
  Serious: Yes (Other)
  Sender: FDA-Public Use
  Company Number: CN-PURDUE-USA-2021-0283765

PATIENT
  Age: 49 Year
  Sex: Male

DRUGS (7)
  1. OXYCODONE HYDROCHLORIDE. [Suspect]
     Active Substance: OXYCODONE HYDROCHLORIDE
     Indication: URETEROLITHIASIS
     Dosage: 10 MG, BID
     Route: 048
     Dates: start: 20210714, end: 20210721
  2. OXYCODONE HYDROCHLORIDE. [Suspect]
     Active Substance: OXYCODONE HYDROCHLORIDE
     Indication: HYDRONEPHROSIS
  3. ETIMICIN SULFATE W/SODIUM CHLORIDE [Suspect]
     Active Substance: ETIMICIN SULFATE
     Indication: HYDRONEPHROSIS
  4. FLURBIPROFEN AXETIL [Suspect]
     Active Substance: FLURBIPROFEN AXETIL
     Indication: HYDRONEPHROSIS
  5. SODIUM CHLORIDE. [Concomitant]
     Active Substance: SODIUM CHLORIDE
     Dosage: 100 ML, BID
     Route: 041
     Dates: start: 20210717, end: 20210721
  6. ETIMICIN SULFATE W/SODIUM CHLORIDE [Suspect]
     Active Substance: ETIMICIN SULFATE
     Indication: URETEROLITHIASIS
     Dosage: 100 ML, DAILY, 7 DAYS
     Route: 041
     Dates: start: 20210714, end: 20210720
  7. FLURBIPROFEN AXETIL [Suspect]
     Active Substance: FLURBIPROFEN AXETIL
     Indication: URETEROLITHIASIS
     Dosage: 50 MG, BID, 4 DAYS
     Route: 041
     Dates: start: 20210717, end: 20210721

REACTIONS (1)
  - Haemoglobin decreased [Unknown]

NARRATIVE: CASE EVENT DATE: 20210719
